FAERS Safety Report 5343890-0 (Version None)
Quarter: 2007Q2

REPORT INFORMATION
  Report Type: 
  Country: None (occurrence: None)
  Receive Date: 20070531
  Receipt Date: 20070531
  Transmission Date: 20071010
  Serious: Yes (Hospitalization)
  Sender: FDA-Public Use
  Company Number: None

PATIENT
  Sex: Male
  Weight: 84 kg

DRUGS (6)
  1. IRINOTECAN HCL [Suspect]
     Indication: GLIOBLASTOMA MULTIFORME
     Dosage: 325MG/M2 DAY 1, 8, 22, 29 IV
     Route: 042
     Dates: start: 20070517
  2. IRINOTECAN HCL [Suspect]
     Indication: GLIOBLASTOMA MULTIFORME
     Dosage: 325MG/M2 DAY 1, 8, 22, 29 IV
     Route: 042
     Dates: start: 20070524
  3. TEMODAR [Suspect]
     Indication: GLIOBLASTOMA MULTIFORME
     Dosage: 200MG/M2 DAYS 1-5 PO
     Route: 048
     Dates: start: 20070517, end: 20070521
  4. DEXAMETHASONE 0.5MG TAB [Concomitant]
  5. ZANTAC [Concomitant]
  6. PHENOBARBITAL TAB [Concomitant]

REACTIONS (7)
  - BRAIN SCAN ABNORMAL [None]
  - DIARRHOEA [None]
  - NAUSEA [None]
  - NEOPLASM PROGRESSION [None]
  - OEDEMA [None]
  - SOMNOLENCE [None]
  - UNRESPONSIVE TO STIMULI [None]
